FAERS Safety Report 14491988 (Version 4)
Quarter: 2019Q1

REPORT INFORMATION
  Report Type: Spontaneous
  Country: US (occurrence: US)
  Receive Date: 20180206
  Receipt Date: 20190301
  Transmission Date: 20190417
  Serious: Yes (Death, Other)
  Sender: FDA-Public Use
  Company Number: US-PFIZER INC-2018052837

PATIENT
  Age: 83 Year
  Sex: Male

DRUGS (1)
  1. XELJANZ XR [Suspect]
     Active Substance: TOFACITINIB CITRATE
     Dosage: 11 MG, UNK

REACTIONS (8)
  - Death [Fatal]
  - Irritability [Unknown]
  - Vision blurred [Unknown]
  - Fluid retention [Unknown]
  - Swelling [Unknown]
  - Malaise [Unknown]
  - Diarrhoea [Unknown]
  - Blister [Unknown]

NARRATIVE: CASE EVENT DATE: 20190124
